FAERS Safety Report 4679971-4 (Version None)
Quarter: 2005Q2

REPORT INFORMATION
  Report Type: 
  Country: None (occurrence: None)
  Receive Date: 20050531
  Receipt Date: 20050517
  Transmission Date: 20051028
  Serious: Yes (Other)
  Sender: FDA-Public Use
  Company Number: 2005076464

PATIENT
  Age: 23 Year
  Sex: Female
  Weight: 77.1115 kg

DRUGS (1)
  1. DEPO-PROVERA [Suspect]
     Indication: CONTRACEPTION
     Dosage: 150 MG (150 MG, 1ST INJECTION , EVERY 10-13 WKS), INTRAMUSCULAR
     Route: 030
     Dates: start: 20020124, end: 20020124

REACTIONS (6)
  - BLOOD GLUCOSE DECREASED [None]
  - FATIGUE [None]
  - LOSS OF CONSCIOUSNESS [None]
  - NAUSEA [None]
  - TREMOR [None]
  - VISION BLURRED [None]
